FAERS Safety Report 8087441-9 (Version None)
Quarter: 2012Q1

REPORT INFORMATION
  Report Type: 
  Country: None (occurrence: None)
  Receive Date: 20120128
  Receipt Date: 20110523
  Transmission Date: 20120608
  Serious: No
  Sender: FDA-Public Use
  Company Number: US-ABBOTT-11P-163-0727815-00

PATIENT
  Sex: Male
  Weight: 122.58 kg

DRUGS (7)
  1. PREDNISONE TAB [Concomitant]
     Indication: RHEUMATOID ARTHRITIS
     Dosage: ONE PILL DAILY, WAS ON 3, 5 MG THEN 2 DAILY
  2. XANAX [Concomitant]
     Indication: ANXIETY
  3. HUMIRA [Suspect]
     Dates: start: 20101201
  4. HUMIRA [Suspect]
     Indication: RHEUMATOID ARTHRITIS
     Dates: start: 20100101, end: 20101201
  5. COMBIVENT [Concomitant]
     Indication: DYSPNOEA
  6. FLOVENT [Concomitant]
     Indication: DYSPNOEA
  7. NEXIUM [Concomitant]
     Indication: GASTROOESOPHAGEAL REFLUX DISEASE

REACTIONS (5)
  - EAR INFECTION [None]
  - CERUMEN IMPACTION [None]
  - HEARING IMPAIRED [None]
  - EAR PAIN [None]
  - PYREXIA [None]
